FAERS Safety Report 16739876 (Version 2)
Quarter: 2019Q3

REPORT INFORMATION
  Report Type: Spontaneous
  Country: US (occurrence: US)
  Receive Date: 20190826
  Receipt Date: 20190906
  Transmission Date: 20191005
  Serious: Yes (Hospitalization, Other)
  Sender: FDA-Public Use
  Company Number: US-PFIZER INC-2019348675

PATIENT
  Age: 15 Year
  Sex: Female

DRUGS (27)
  1. CLONAZEPAM. [Concomitant]
     Active Substance: CLONAZEPAM
     Indication: POST-TRAUMATIC STRESS DISORDER
  2. IMIPRAMINE [Concomitant]
     Active Substance: IMIPRAMINE
     Indication: GENERALISED ANXIETY DISORDER
  3. IMIPRAMINE [Concomitant]
     Active Substance: IMIPRAMINE
     Indication: POST-TRAUMATIC STRESS DISORDER
  4. LORAZEPAM. [Concomitant]
     Active Substance: LORAZEPAM
     Indication: MAJOR DEPRESSION
     Dosage: UNK
  5. OLANZAPINE. [Concomitant]
     Active Substance: OLANZAPINE
     Indication: MAJOR DEPRESSION
     Dosage: UNK
  6. FLUVOXAMINE [Concomitant]
     Active Substance: FLUVOXAMINE
     Indication: POST-TRAUMATIC STRESS DISORDER
  7. LORAZEPAM. [Concomitant]
     Active Substance: LORAZEPAM
     Indication: GENERALISED ANXIETY DISORDER
  8. PRAZOSIN. [Concomitant]
     Active Substance: PRAZOSIN
     Indication: MAJOR DEPRESSION
  9. VENLAFAXINE [Concomitant]
     Active Substance: VENLAFAXINE HYDROCHLORIDE
     Indication: MAJOR DEPRESSION
     Dosage: UNK
  10. VENLAFAXINE [Concomitant]
     Active Substance: VENLAFAXINE HYDROCHLORIDE
     Indication: GENERALISED ANXIETY DISORDER
  11. SERTRALINE HCL [Suspect]
     Active Substance: SERTRALINE HYDROCHLORIDE
     Indication: MAJOR DEPRESSION
     Dosage: 3000 MG, SINGLE (3000 MG, TOTAL, INGESTION)
     Route: 048
  12. SERTRALINE HCL [Suspect]
     Active Substance: SERTRALINE HYDROCHLORIDE
     Indication: GENERALISED ANXIETY DISORDER
  13. ARIPIPRAZOLE. [Concomitant]
     Active Substance: ARIPIPRAZOLE
     Indication: MAJOR DEPRESSION
     Dosage: UNK
  14. FLUVOXAMINE [Concomitant]
     Active Substance: FLUVOXAMINE
     Indication: GENERALISED ANXIETY DISORDER
  15. SERTRALINE HCL [Suspect]
     Active Substance: SERTRALINE HYDROCHLORIDE
     Indication: POST-TRAUMATIC STRESS DISORDER
  16. CLONAZEPAM. [Concomitant]
     Active Substance: CLONAZEPAM
     Indication: GENERALISED ANXIETY DISORDER
  17. FLUVOXAMINE [Concomitant]
     Active Substance: FLUVOXAMINE
     Indication: MAJOR DEPRESSION
     Dosage: UNK
  18. VENLAFAXINE [Concomitant]
     Active Substance: VENLAFAXINE HYDROCHLORIDE
     Indication: POST-TRAUMATIC STRESS DISORDER
  19. ZIPRASIDONE. [Concomitant]
     Active Substance: ZIPRASIDONE
     Indication: MAJOR DEPRESSION
     Dosage: UNK
  20. CHLORPROMAZINE. [Concomitant]
     Active Substance: CHLORPROMAZINE
     Indication: MAJOR DEPRESSION
     Dosage: UNK
  21. ESCITALOPRAM [Concomitant]
     Active Substance: ESCITALOPRAM OXALATE
     Indication: POST-TRAUMATIC STRESS DISORDER
  22. IMIPRAMINE [Concomitant]
     Active Substance: IMIPRAMINE
     Indication: MAJOR DEPRESSION
     Dosage: UNK
  23. LORAZEPAM. [Concomitant]
     Active Substance: LORAZEPAM
     Indication: POST-TRAUMATIC STRESS DISORDER
  24. ESCITALOPRAM [Concomitant]
     Active Substance: ESCITALOPRAM OXALATE
     Indication: MAJOR DEPRESSION
     Dosage: 20 MG, DAILY
  25. ESCITALOPRAM [Concomitant]
     Active Substance: ESCITALOPRAM OXALATE
     Indication: GENERALISED ANXIETY DISORDER
  26. PRAZOSIN. [Concomitant]
     Active Substance: PRAZOSIN
     Indication: NIGHTMARE
     Dosage: UNK
  27. CLONAZEPAM. [Concomitant]
     Active Substance: CLONAZEPAM
     Indication: MAJOR DEPRESSION
     Dosage: UNK

REACTIONS (11)
  - Dysdiadochokinesis [Unknown]
  - Confusional state [Unknown]
  - Prescription drug used without a prescription [Unknown]
  - Clonus [Unknown]
  - Tremor [Unknown]
  - Electrocardiogram QT prolonged [Unknown]
  - Mydriasis [Unknown]
  - Intentional overdose [Unknown]
  - Delirium [Unknown]
  - Mental disorder [Unknown]
  - Toxicity to various agents [Unknown]
